FAERS Safety Report 6671718-5 (Version None)
Quarter: 2010Q2

REPORT INFORMATION
  Report Type: 
  Country: None (occurrence: None)
  Receive Date: 20100407
  Receipt Date: 20100407
  Transmission Date: 20101027
  Serious: Yes (Hospitalization)
  Sender: FDA-Public Use
  Company Number: PHHO2007RU00843

PATIENT
  Sex: Female
  Weight: 85.2 kg

DRUGS (3)
  1. ACLASTA/ZOLEDRONATE T29581+A+SOLINJ [Suspect]
     Indication: OSTEOPOROSIS POSTMENOPAUSAL
     Dosage: 5 MG ONCE A YEAR
     Route: 042
     Dates: start: 20060320
  2. CALCIUM [Concomitant]
     Indication: OSTEOPOROSIS POSTMENOPAUSAL
  3. VITAMIN D [Concomitant]
     Indication: OSTEOPOROSIS POSTMENOPAUSAL

REACTIONS (6)
  - ABDOMINAL PAIN [None]
  - DIARRHOEA [None]
  - DIVERTICULUM [None]
  - GASTROINTESTINAL TRACT ADENOMA [None]
  - SURGERY [None]
  - VOMITING [None]
